FAERS Safety Report 9366603 (Version 3)
Quarter: 2013Q4

REPORT INFORMATION
  Report Type: Spontaneous
  Country: BR (occurrence: BR)
  Receive Date: 20130625
  Receipt Date: 20131023
  Transmission Date: 20140711
  Serious: Yes (Other)
  Sender: FDA-Public Use
  Company Number: BR-PFIZER INC-2013187340

PATIENT
  Age: 81 Year
  Sex: Male
  Weight: 58 kg

DRUGS (5)
  1. ATENOLOL [Suspect]
     Indication: ARRHYTHMIA
     Dosage: 25 MG, 2X/DAY
     Route: 048
     Dates: start: 2003
  2. ATENOLOL [Suspect]
     Indication: HYPERTENSION
     Dosage: 25 MG, AS NEEDED
     Route: 048
     Dates: start: 2003
  3. ATENOLOL [Suspect]
     Dosage: 3 DF, DAILY
     Route: 048
     Dates: start: 2003
  4. CRESTOR [Suspect]
     Indication: BLOOD CHOLESTEROL INCREASED
     Dosage: 10 MG, DAILY
     Route: 048
     Dates: start: 2003
  5. ASPIRINA [Concomitant]
     Dosage: UNK

REACTIONS (9)
  - Myocardial ischaemia [Recovered/Resolved]
  - Influenza [Not Recovered/Not Resolved]
  - Circumstance or information capable of leading to medication error [Recovered/Resolved]
  - Oedema mouth [Recovered/Resolved]
  - Swollen tongue [Recovered/Resolved]
  - Off label use [Not Recovered/Not Resolved]
  - Arrhythmia [Not Recovered/Not Resolved]
  - Feeling cold [Not Recovered/Not Resolved]
  - Dry mouth [Not Recovered/Not Resolved]
